FAERS Safety Report 6745877-X (Version None)
Quarter: 2010Q2

REPORT INFORMATION
  Report Type: 
  Country: None (occurrence: None)
  Receive Date: 20100528
  Receipt Date: 20100528
  Transmission Date: 20101027
  Serious: No
  Sender: FDA-Public Use
  Company Number: None

PATIENT
  Sex: Male
  Weight: 9.5255 kg

DRUGS (2)
  1. CONCENTRATED MOTRIN INFANT 50 MG PER 1/25 ML MCNEIL CONSUMER HEALTHCAR [Suspect]
     Indication: PYREXIA
     Dosage: 80 - 100 MG Q6 HRS PO
     Route: 048
     Dates: start: 20100422, end: 20100429
  2. CONCENTRATED TYLENOL INFANT 80 MG PER 0.8 ML MCNEIL CONSUMER HEALTHCAR [Suspect]
     Indication: PYREXIA
     Dosage: 80 MG Q 4-6 HRS PO
     Route: 048
     Dates: start: 20100424, end: 20100428

REACTIONS (2)
  - OSTEOMYELITIS [None]
  - STAPHYLOCOCCAL INFECTION [None]
